FAERS Safety Report 12728820 (Version 1)
Quarter: 2016Q3

REPORT INFORMATION
  Report Type: Spontaneous
  Country: DE (occurrence: DE)
  Receive Date: 20160909
  Receipt Date: 20160909
  Transmission Date: 20161109
  Serious: Yes (Other)
  Sender: FDA-Public Use
  Company Number: HRA-CDB20160108(1)

PATIENT
  Age: 39 Year
  Sex: Female

DRUGS (1)
  1. ELLA [Suspect]
     Active Substance: ULIPRISTAL ACETATE
     Route: 048
     Dates: start: 20160118, end: 20160118

REACTIONS (3)
  - Abortion threatened [None]
  - Drug ineffective [None]
  - Unintended pregnancy [None]
